FAERS Safety Report 6308906-3 (Version None)
Quarter: 2009Q3

REPORT INFORMATION
  Report Type: 
  Country: None (occurrence: None)
  Receive Date: 20090813
  Receipt Date: 20090316
  Transmission Date: 20100115
  Serious: No
  Sender: FDA-Public Use
  Company Number: US-ALLERGAN-0903592US

PATIENT
  Age: 77 Year
  Sex: Female

DRUGS (3)
  1. COMBIGAN [Suspect]
     Indication: GLAUCOMA
     Route: 047
  2. TRAVATAN [Concomitant]
     Indication: GLAUCOMA
     Route: 047
     Dates: start: 20080101
  3. LISINOPRIL [Concomitant]
     Indication: HYPERTENSION
     Route: 048

REACTIONS (1)
  - HEART RATE DECREASED [None]
